FAERS Safety Report 11219933 (Version 1)
Quarter: 2015Q2

REPORT INFORMATION
  Report Type: Spontaneous
  Country: US (occurrence: None)
  Receive Date: 20150624
  Receipt Date: 20150624
  Transmission Date: 20150821
  Serious: No
  Sender: FDA-Public Use
  Company Number: None

PATIENT
  Age: 51 Year
  Sex: Female
  Weight: 90.72 kg

DRUGS (4)
  1. LEVOTHYROXIN TAB 50MCG [Concomitant]
  2. LANSOPRAZOLE CAP 30MG DR [Concomitant]
  3. ESOMEPRAZOLEMAGNESIUM DR [Suspect]
     Active Substance: ESOMEPRAZOLE MAGNESIUM
     Indication: GASTROOESOPHAGEAL REFLUX DISEASE
     Dosage: 1 CAP
     Route: 048
     Dates: start: 20150315, end: 20150422
  4. VENTOLIN HFA AER [Concomitant]

REACTIONS (4)
  - Drug ineffective [None]
  - Product substitution issue [None]
  - Condition aggravated [None]
  - Gastrooesophageal reflux disease [None]

NARRATIVE: CASE EVENT DATE: 20150316
